FAERS Safety Report 24971208 (Version 1)
Quarter: 2025Q1

REPORT INFORMATION
  Report Type: Spontaneous
  Country: US (occurrence: US)
  Receive Date: 20250214
  Receipt Date: 20250214
  Transmission Date: 20250409
  Serious: No
  Sender: EISAI
  Company Number: US-Eisai-EC-2025-183070

PATIENT
  Age: 67 Year
  Sex: Female

DRUGS (1)
  1. LECANEMAB [Suspect]
     Active Substance: LECANEMAB
     Indication: Product used for unknown indication

REACTIONS (1)
  - Infusion related reaction [Recovered/Resolved]
